FAERS Safety Report 10246952 (Version 1)
Quarter: 2014Q2

REPORT INFORMATION
  Report Type: Report from Study
  Country: CA (occurrence: CA)
  Receive Date: 20140619
  Receipt Date: 20140619
  Transmission Date: 20141212
  Serious: Yes (Death, Hospitalization)
  Sender: FDA-Public Use
  Company Number: CA-JNJFOC-20140612382

PATIENT
  Age: 65 Year
  Sex: Female
  Weight: 81.01 kg

DRUGS (1)
  1. REMICADE [Suspect]
     Indication: RHEUMATOID ARTHRITIS
     Route: 042
     Dates: start: 20081112, end: 20140404

REACTIONS (3)
  - Gastrointestinal necrosis [Fatal]
  - Intestinal obstruction [Fatal]
  - Faecal incontinence [Fatal]
